FAERS Safety Report 18776366 (Version 1)
Quarter: 2021Q1

REPORT INFORMATION
  Report Type: Report from Study
  Country: None (occurrence: DE)
  Receive Date: 20210123
  Receipt Date: 20210123
  Transmission Date: 20210419
  Serious: Yes (Hospitalization)
  Sender: FDA-Public Use
  Company Number: DE-ABBVIE-20K-062-3712152-00

PATIENT
  Age: 60 Year
  Sex: Male

DRUGS (3)
  1. METEX [Concomitant]
     Indication: RHEUMATOID ARTHRITIS
     Dosage: BEFORE RINVOQ
     Route: 058
  2. RINVOQ [Suspect]
     Active Substance: UPADACITINIB
     Indication: RHEUMATOID ARTHRITIS
     Route: 048
     Dates: start: 20201101
  3. CORTISONE [Concomitant]
     Active Substance: CORTISONE
     Indication: RHEUMATOID ARTHRITIS
     Dosage: BEFORE RINVOQ
     Route: 048

REACTIONS (5)
  - Parosmia [Not Recovered/Not Resolved]
  - Acne [Unknown]
  - Rash [Not Recovered/Not Resolved]
  - Chronic obstructive pulmonary disease [Not Recovered/Not Resolved]
  - Taste disorder [Not Recovered/Not Resolved]

NARRATIVE: CASE EVENT DATE: 202011
